FAERS Safety Report 19922321 (Version 3)
Quarter: 2021Q4

REPORT INFORMATION
  Report Type: Spontaneous
  Country: US (occurrence: US)
  Receive Date: 20211005
  Receipt Date: 20211103
  Transmission Date: 20220303
  Serious: Yes (Other)
  Sender: FDA-Public Use
  Company Number: US-PFIZER INC-202101295692

PATIENT
  Age: 74 Year
  Sex: Male
  Weight: 114.29 kg

DRUGS (2)
  1. DILANTIN [Suspect]
     Active Substance: PHENYTOIN
     Indication: Seizure
     Dosage: UNK
  2. PHENYTOIN SODIUM [Suspect]
     Active Substance: PHENYTOIN SODIUM
     Indication: Seizure
     Dosage: 200 MG, 1X/DAY (2 CAPSULES BY MOUTH ONCE A DAY AT BED TIME)
     Route: 048
     Dates: start: 2020

REACTIONS (10)
  - Haematochezia [Unknown]
  - Constipation [Unknown]
  - Peripheral swelling [Unknown]
  - Dyspnoea [Unknown]
  - Nocturia [Unknown]
  - Monocyte count increased [Unknown]
  - Blood urea increased [Unknown]
  - Blood urea nitrogen/creatinine ratio increased [Unknown]
  - Blood glucose increased [Unknown]
  - Blood calcium decreased [Unknown]

NARRATIVE: CASE EVENT DATE: 20210802
